FAERS Safety Report 6146326-5 (Version None)
Quarter: 2009Q2

REPORT INFORMATION
  Report Type: 
  Country: None (occurrence: None)
  Receive Date: 20090403
  Receipt Date: 20090403
  Transmission Date: 20091009
  Serious: Yes (Life-Threatening)
  Sender: FDA-Public Use
  Company Number: None

PATIENT
  Sex: Female

DRUGS (3)
  1. HYDROCHLOROTHIAZIDE [Suspect]
     Indication: HYPERTENSION
     Dosage: 25 MG TO 50 MG 1 TAB EVERY DAY PO
     Route: 048
     Dates: start: 20070101, end: 20090101
  2. DIOVAN [Suspect]
     Indication: HYPERTENSION
     Dosage: 160/25 MG ONE TAB EVERYDAY PO
     Route: 048
     Dates: start: 20050101, end: 20060101
  3. ATENOLOL [Concomitant]

REACTIONS (4)
  - CHEST PAIN [None]
  - CONTUSION [None]
  - GINGIVAL BLEEDING [None]
  - GINGIVAL DISORDER [None]
